FAERS Safety Report 6976979-0 (Version None)
Quarter: 2010Q3

REPORT INFORMATION
  Report Type: 
  Country: None (occurrence: None)
  Receive Date: 20100910
  Receipt Date: 20100831
  Transmission Date: 20110219
  Serious: Yes (Disabling)
  Sender: FDA-Public Use
  Company Number: FI-WYE-H17400610

PATIENT
  Age: 55 Year
  Sex: Male

DRUGS (6)
  1. CORDARONE [Suspect]
     Indication: ATRIAL FIBRILLATION
     Dosage: 200 MG (FREQUENCY NOT SPECIFIED)
     Route: 048
     Dates: start: 20090601
  2. ACETAZOLAMIDE [Concomitant]
     Dosage: DOSE AND FREQUENCY NOT SPECIFIED
     Route: 065
     Dates: start: 20100415, end: 20100615
  3. MAREVAN FORTE [Concomitant]
  4. SWINE FLU VACCINE, MONOVALENT [Suspect]
     Indication: IMMUNISATION
     Dosage: DOSE AND FREQUENCY NOT SPECIFIED
     Route: 065
  5. CARDACE [Concomitant]
  6. THYROXIN [Concomitant]

REACTIONS (2)
  - FATIGUE [None]
  - PARKINSONISM [None]
